FAERS Safety Report 8474269-0 (Version None)
Quarter: 2012Q2

REPORT INFORMATION
  Report Type: 
  Country: None (occurrence: None)
  Receive Date: 20120402
  Receipt Date: 20111221
  Transmission Date: 20120825
  Serious: Yes (Disabling, Other)
  Sender: FDA-Public Use
  Company Number: 314772USA

PATIENT
  Sex: Female

DRUGS (8)
  1. ALENDRONATE SODIUM [Suspect]
     Indication: OSTEOPOROSIS
  2. ALENDRONATE SODIUM [Suspect]
     Indication: OSTEOPENIA
  3. ALENDRONATE SODIUM [Suspect]
     Indication: BONE DISORDER
  4. ALENDRONATE SODIUM [Suspect]
     Indication: BONE DISORDER
  5. ALENDRONATE SODIUM [Suspect]
     Indication: OSTEOPOROSIS
  6. ALENDRONATE SODIUM [Suspect]
     Indication: OSTEOPENIA
  7. FOSAMAX PLUS D [Suspect]
     Indication: OSTEOPENIA
  8. FOSAMAX PLUS D [Suspect]
     Indication: OSTEOPOROSIS

REACTIONS (4)
  - BONE LOSS [None]
  - LOW TURNOVER OSTEOPATHY [None]
  - FEMUR FRACTURE [None]
  - SKELETAL INJURY [None]
